FAERS Safety Report 9107827 (Version 1)
Quarter: 2013Q1

REPORT INFORMATION
  Report Type: Spontaneous
  Country: US (occurrence: US)
  Receive Date: 20130221
  Receipt Date: 20130221
  Transmission Date: 20140127
  Serious: No
  Sender: FDA-Public Use
  Company Number: US-PFIZER INC-2013062822

PATIENT
  Age: 71 Year
  Sex: Male

DRUGS (12)
  1. INLYTA [Suspect]
     Indication: MALIGNANT URINARY TRACT NEOPLASM
     Dosage: 5 MG, UNK
     Dates: start: 20130121
  2. CARVEDILOL [Concomitant]
     Dosage: UNK
  3. KEPPRA [Concomitant]
     Dosage: UNK
  4. DIGOXIN [Concomitant]
     Dosage: UNK
  5. LIPITOR [Concomitant]
     Dosage: UNK
  6. DOXAZOSIN MESILATE [Concomitant]
     Dosage: UNK
  7. PLAVIX [Concomitant]
     Dosage: UNK
  8. EPLERENONE [Concomitant]
     Dosage: UNK
  9. URSODIOL [Concomitant]
     Dosage: UNK
  10. FLOMAX [Concomitant]
     Dosage: UNK
  11. ZOLOFT [Concomitant]
     Dosage: UNK
  12. FUROSEMIDE [Concomitant]
     Dosage: UNK

REACTIONS (2)
  - Fatigue [Unknown]
  - Headache [Unknown]
